FAERS Safety Report 18511078 (Version 1)
Quarter: 2020Q4

REPORT INFORMATION
  Report Type: Spontaneous
  Country: FR (occurrence: FR)
  Receive Date: 20201117
  Receipt Date: 20201117
  Transmission Date: 20210114
  Serious: Yes (Hospitalization)
  Sender: FDA-Public Use
  Company Number: FR-MYLANLABS-2020M1093968

PATIENT
  Age: 50 Year
  Sex: Female
  Weight: 71 kg

DRUGS (2)
  1. LUTENYL [Suspect]
     Active Substance: NOMEGESTROL ACETATE
     Indication: CONTRACEPTION
     Dosage: 3.75 MILLIGRAM (3.75 MG 21 DAYS/ 28DAYS)
     Route: 048
     Dates: start: 20030201, end: 20190702
  2. OROMONE 1 MG, COMPRIM? PELLICUL? [Suspect]
     Active Substance: ESTRADIOL
     Indication: CONTRACEPTION
     Dosage: UNK (TABLET PER DAY, 21DAY/28DAY)
     Route: 048
     Dates: start: 20030201, end: 20190702

REACTIONS (1)
  - Meningioma [Not Recovered/Not Resolved]

NARRATIVE: CASE EVENT DATE: 20190618
